FAERS Safety Report 5964436-X (Version None)
Quarter: 2008Q4

REPORT INFORMATION
  Report Type: 
  Country: None (occurrence: None)
  Receive Date: 20081124
  Receipt Date: 20081124
  Transmission Date: 20090506
  Serious: No
  Sender: FDA-Public Use
  Company Number: None

PATIENT
  Age: 73 Year
  Sex: Female

DRUGS (1)
  1. ACTONEL [Suspect]
     Indication: OSTEOPOROSIS
     Dosage: 150 MG ONCE A MONTH ORAL
     Route: 048
     Dates: start: 20080901

REACTIONS (4)
  - BONE PAIN [None]
  - HEADACHE [None]
  - PAIN IN JAW [None]
  - TOOTHACHE [None]
